FAERS Safety Report 18197677 (Version 4)
Quarter: 2020Q3

REPORT INFORMATION
  Report Type: Spontaneous
  Country: US (occurrence: US)
  Receive Date: 20200826
  Receipt Date: 20200903
  Transmission Date: 20201103
  Serious: Yes (Other)
  Sender: FDA-Public Use
  Company Number: US-PFIZER INC-2020154945

PATIENT
  Age: 84 Year
  Sex: Female
  Weight: 58.51 kg

DRUGS (2)
  1. PREMPRO [Suspect]
     Active Substance: ESTROGENS, CONJUGATED\MEDROXYPROGESTERONE ACETATE
     Indication: MENOPAUSAL SYMPTOMS
     Dosage: 1 DF, 1X/DAY (PREMPRO 0.625 MG?2.5 MG TABLET)
     Route: 048
     Dates: start: 2012
  2. PREMPRO [Suspect]
     Active Substance: ESTROGENS, CONJUGATED\MEDROXYPROGESTERONE ACETATE
     Indication: MENOPAUSAL SYMPTOMS

REACTIONS (3)
  - Agitation [Unknown]
  - Dementia [Unknown]
  - Confusional state [Unknown]
